FAERS Safety Report 23466839 (Version 1)
Quarter: 2024Q1

REPORT INFORMATION
  Report Type: Spontaneous
  Country: US (occurrence: US)
  Receive Date: 20240201
  Receipt Date: 20240201
  Transmission Date: 20240410
  Serious: No
  Sender: FDA-Public Use
  Company Number: US-BAUSCH-BL-2024-001324

PATIENT
  Age: 52 Year
  Sex: Female
  Weight: 54.43 kg

DRUGS (2)
  1. AVITA [Suspect]
     Active Substance: TRETINOIN
     Indication: Product used for unknown indication
     Dosage: USING THE PRODUCT FOR 15 YEARS
     Route: 065
  2. AVITA [Suspect]
     Active Substance: TRETINOIN
     Dosage: AT NIGHT
     Route: 065
     Dates: start: 20231124

REACTIONS (1)
  - Eye swelling [Unknown]
